FAERS Safety Report 10365561 (Version 1)
Quarter: 2014Q3

REPORT INFORMATION
  Report Type: Spontaneous
  Country: MX (occurrence: None)
  Receive Date: 20140804
  Receipt Date: 20140804
  Transmission Date: 20150326
  Serious: Yes (Disabling)
  Sender: FDA-Public Use
  Company Number: None

PATIENT
  Age: 66 Year
  Sex: Male
  Weight: 72 kg

DRUGS (1)
  1. ATROVENT [Suspect]
     Active Substance: IPRATROPIUM BROMIDE
     Indication: ASTHMA
     Route: 048
     Dates: start: 20140711, end: 20140731

REACTIONS (3)
  - Ocular discomfort [None]
  - Eye pain [None]
  - Cataract [None]

NARRATIVE: CASE EVENT DATE: 20140723
